FAERS Safety Report 11399716 (Version 1)
Quarter: 2015Q3

REPORT INFORMATION
  Report Type: Spontaneous
  Country: US (occurrence: None)
  Receive Date: 20150805
  Receipt Date: 20150805
  Transmission Date: 20151125
  Serious: Yes (Other)
  Sender: FDA-Public Use
  Company Number: GTI002665

PATIENT
  Age: 35 Year
  Sex: Female

DRUGS (4)
  1. IGIV [Suspect]
     Active Substance: HUMAN IMMUNOGLOBULIN G
     Indication: EPILEPSY
     Route: 042
  2. PHENOVARBITAL [Concomitant]
  3. LEVETIRACETAM. [Concomitant]
     Active Substance: LEVETIRACETAM
  4. ANTI-SEIZURE MEDICATION [Concomitant]

REACTIONS (1)
  - Embolism [None]
